FAERS Safety Report 18965901 (Version 1)
Quarter: 2021Q1

REPORT INFORMATION
  Report Type: Spontaneous
  Country: US (occurrence: US)
  Receive Date: 20210304
  Receipt Date: 20210304
  Transmission Date: 20210420
  Serious: No
  Sender: FDA-Public Use
  Company Number: US-SA-2021SA072285

PATIENT
  Sex: Male

DRUGS (1)
  1. CERDELGA [Suspect]
     Active Substance: ELIGLUSTAT
     Dosage: UNK
     Dates: start: 2019

REACTIONS (6)
  - Acne [Unknown]
  - Pyrexia [Recovered/Resolved]
  - Erythema [Unknown]
  - SARS-CoV-2 antibody test positive [Recovered/Resolved]
  - Rash [Unknown]
  - COVID-19 [Recovered/Resolved]

NARRATIVE: CASE EVENT DATE: 202010
